FAERS Safety Report 8257254 (Version 3)
Quarter: 2013Q1

REPORT INFORMATION
  Report Type: Spontaneous
  Country: US (occurrence: US)
  Receive Date: 20111121
  Receipt Date: 20130212
  Transmission Date: 20140127
  Serious: Yes (Life-Threatening, Hospitalization, Other)
  Sender: FDA-Public Use
  Company Number: US-BAYER-2011-109683

PATIENT
  Age: 41 Year
  Sex: Female
  Weight: 56.24 kg

DRUGS (16)
  1. YAZ [Suspect]
     Indication: UTERINE LEIOMYOMA
     Dosage: UNK
     Dates: start: 200906, end: 200912
  2. YAZ [Suspect]
     Indication: MENORRHAGIA
  3. CELEXA [Concomitant]
     Dosage: 20 MG, UNK
  4. CELEXA [Concomitant]
     Dosage: 40 MG, QD
  5. LEVOXYL [Concomitant]
     Dosage: 150 ?G, UNK
  6. TRETINOIN [Concomitant]
     Dosage: 0.1 %, BID
  7. AMBIEN [Concomitant]
     Indication: INSOMNIA
     Dosage: 10 MG, PRN
  8. LORAZEPAM [Concomitant]
     Indication: INSOMNIA
     Dosage: 1 MG, PRN
  9. BUPROPION HYDROCHLORIDE [Concomitant]
     Dosage: 75 MG, TID
  10. ACYCLOVIR [ACICLOVIR] [Concomitant]
     Dosage: 400 MG, TID
  11. ANTIBIOTICS [Concomitant]
  12. NSAID^S [Concomitant]
  13. LEVOTHYROXINE SODIUM [Concomitant]
     Indication: HYPOTHYROIDISM
     Dosage: UNK
     Dates: start: 2002
  14. ORAL CONTRACEPTIVE NOS [Concomitant]
     Indication: CONTRACEPTION
     Dosage: UNK
     Dates: start: 2000
  15. ORAL CONTRACEPTIVE NOS [Concomitant]
     Indication: UTERINE LEIOMYOMA
  16. ORAL CONTRACEPTIVE NOS [Concomitant]
     Indication: MENORRHAGIA

REACTIONS (9)
  - Pulmonary embolism [None]
  - Visual impairment [None]
  - Injury [None]
  - General physical health deterioration [None]
  - Anxiety [None]
  - Anhedonia [None]
  - Pain [None]
  - Dyspnoea [None]
  - Off label use [None]
